FAERS Safety Report 6540562-1 (Version None)
Quarter: 2010Q1

REPORT INFORMATION
  Report Type: 
  Country: None (occurrence: None)
  Receive Date: 20100118
  Receipt Date: 20100105
  Transmission Date: 20100710
  Serious: Yes (Other)
  Sender: FDA-Public Use
  Company Number: US-BAYER-200943531NA

PATIENT
  Age: 61 Year
  Sex: Female

DRUGS (4)
  1. BETASERON [Suspect]
     Indication: MULTIPLE SCLEROSIS
     Dosage: TOTAL DAILY DOSE: 8 MIU
     Route: 058
     Dates: start: 20060803, end: 20091012
  2. LASIX [Concomitant]
  3. POTASSIUM CHLORIDE [Concomitant]
  4. DIGESTION PILL NOS [Concomitant]

REACTIONS (2)
  - GENERALISED OEDEMA [None]
  - HEPATIC FAILURE [None]
